FAERS Safety Report 9725778 (Version 2)
Quarter: 2014Q2

REPORT INFORMATION
  Report Type: Spontaneous
  Country: FR (occurrence: FR)
  Receive Date: 20131203
  Receipt Date: 20140512
  Transmission Date: 20141212
  Serious: Yes (Hospitalization)
  Sender: FDA-Public Use
  Company Number: FR-JNJFOC-20131113653

PATIENT
  Age: 32 Year
  Sex: Male
  Weight: 105 kg

DRUGS (1)
  1. RISPERDAL CONSTA [Suspect]
     Indication: PRODUCT USED FOR UNKNOWN INDICATION
     Dosage: 0.0667 DOSE.
     Route: 030
     Dates: start: 201302, end: 20130821

REACTIONS (4)
  - Spontaneous haematoma [Recovered/Resolved]
  - Thrombocytopenia [Unknown]
  - Thrombocytopenic purpura [Unknown]
  - Hepatic steatosis [Unknown]
